FAERS Safety Report 6151330-7 (Version None)
Quarter: 2009Q2

REPORT INFORMATION
  Report Type: 
  Country: None (occurrence: None)
  Receive Date: 20090410
  Receipt Date: 20080107
  Transmission Date: 20091009
  Serious: Yes (Hospitalization, Disabling, Other)
  Sender: FDA-Public Use
  Company Number: US-ASTRAZENECA-2007UW21658

PATIENT
  Age: 18630 Day
  Sex: Female
  Weight: 78 kg

DRUGS (26)
  1. SEROQUEL [Suspect]
     Indication: DEPRESSION
     Dosage: 200 MG, 300 MG, 600 MG
     Route: 048
     Dates: start: 19980801, end: 20060901
  2. SEROQUEL [Suspect]
     Indication: BIPOLAR DISORDER
     Dosage: 200 MG, 300 MG, 600 MG
     Route: 048
     Dates: start: 19980801, end: 20060901
  3. SEROQUEL [Suspect]
     Indication: PARANOIA
     Dosage: 200 MG, 300 MG, 600 MG
     Route: 048
     Dates: start: 19980801, end: 20060901
  4. DEPAKOTE [Concomitant]
  5. ZOLOFT [Concomitant]
  6. ASPIRIN [Concomitant]
  7. NORVASC [Concomitant]
  8. METFORMIN HCL [Concomitant]
  9. PLAVIX [Concomitant]
  10. LISINOPRIL [Concomitant]
  11. CELEBREX [Concomitant]
  12. FLEXERIL [Concomitant]
  13. OSCAL [Concomitant]
  14. ARICEPT [Concomitant]
  15. TRICOR [Concomitant]
  16. ATIVAN [Concomitant]
  17. INSULIN, REGULAR [Concomitant]
  18. HALDOL [Concomitant]
  19. LIPITOR [Concomitant]
  20. NAVANE [Concomitant]
  21. BISOPROLOL FUMARATE [Concomitant]
  22. AMANTADINE HCL [Concomitant]
  23. ABILIFY [Concomitant]
  24. KLONOPIN [Concomitant]
  25. LAMICTAL [Concomitant]
  26. RISPERDAL [Concomitant]

REACTIONS (27)
  - AGITATION [None]
  - BACK PAIN [None]
  - BLINDNESS [None]
  - CATARACT [None]
  - CEREBROVASCULAR ACCIDENT [None]
  - CONFUSIONAL STATE [None]
  - DELUSIONAL PERCEPTION [None]
  - DENTAL CARIES [None]
  - DIABETES MELLITUS [None]
  - FATIGUE [None]
  - GASTROOESOPHAGEAL REFLUX DISEASE [None]
  - GRANDIOSITY [None]
  - HALLUCINATION, AUDITORY [None]
  - HALLUCINATION, VISUAL [None]
  - INCOHERENT [None]
  - INSOMNIA [None]
  - IRRITABILITY [None]
  - MANIA [None]
  - MENTAL DISORDER [None]
  - MOOD SWINGS [None]
  - OSTEOPOROSIS [None]
  - PARANOIA [None]
  - PSYCHOTIC DISORDER [None]
  - RESTLESS LEGS SYNDROME [None]
  - SCHIZOPHRENIA [None]
  - SCHIZOPHRENIA, DISORGANISED TYPE [None]
  - SUICIDAL IDEATION [None]
